FAERS Safety Report 12839786 (Version 3)
Quarter: 2016Q4

REPORT INFORMATION
  Report Type: Report from Study
  Country: None (occurrence: FI)
  Receive Date: 20161012
  Receipt Date: 20161025
  Transmission Date: 20170207
  Serious: Yes (Hospitalization)
  Sender: FDA-Public Use
  Company Number: FI-ABBVIE-16P-055-1749190-00

PATIENT
  Age: 62 Year
  Sex: Male

DRUGS (16)
  1. LACTULOSE (LEVOLAC) [Concomitant]
     Indication: PRODUCT USED FOR UNKNOWN INDICATION
     Dates: start: 20161010
  2. FOLIC ACID (FOLVITE) [Concomitant]
     Indication: PRODUCT USED FOR UNKNOWN INDICATION
     Dates: start: 20161010
  3. ZOPICLONE (IMOVANE) [Concomitant]
     Indication: INSOMNIA
     Dates: start: 20161010
  4. ACETYLSALICYLIC ACID [Concomitant]
     Active Substance: ASPIRIN
     Indication: PRODUCT USED FOR UNKNOWN INDICATION
     Dates: start: 20161010
  5. DUODOPA [Suspect]
     Active Substance: CARBIDOPA\LEVODOPA
     Dosage: MD: 3.6, CD 4.0-4.4, EXTRA DOSE: 1.6. 24H TREATMENT
     Route: 050
     Dates: start: 20160307, end: 201610
  6. BISOPROLOL [Concomitant]
     Active Substance: BISOPROLOL
     Indication: HYPERTENSION
     Dates: start: 20161010
  7. CARDACE [Concomitant]
     Active Substance: RAMIPRIL
     Indication: PRODUCT USED FOR UNKNOWN INDICATION
     Dates: start: 20161010
  8. DUODOPA [Suspect]
     Active Substance: CARBIDOPA\LEVODOPA
     Dosage: 24 HR TX: NIGHT: 2.3, MORNING: 3.8, DAY: 3.8-4.5 AS NEEDED, EXTRA 1.6 CD 4.4 ML/H
     Route: 050
     Dates: start: 201610
  9. PARACETAMOL (PANADOL FORTE) [Concomitant]
     Indication: PRODUCT USED FOR UNKNOWN INDICATION
     Dosage: TWICE A DAY AS NEEDED
     Dates: start: 20161010
  10. DUODOPA [Suspect]
     Active Substance: CARBIDOPA\LEVODOPA
     Indication: PARKINSON^S DISEASE
     Route: 050
     Dates: start: 20100908, end: 20160112
  11. DUODOPA [Suspect]
     Active Substance: CARBIDOPA\LEVODOPA
     Route: 050
     Dates: start: 20160225, end: 20160307
  12. KETIPINOR [Concomitant]
     Active Substance: QUETIAPINE FUMARATE
     Indication: PRODUCT USED FOR UNKNOWN INDICATION
     Dates: start: 20161010
  13. EXELON [Concomitant]
     Active Substance: RIVASTIGMINE TARTRATE
     Indication: PRODUCT USED FOR UNKNOWN INDICATION
     Dates: start: 20161010
  14. MALTOFER [Concomitant]
     Active Substance: IRON POLYMALTOSE
     Indication: PRODUCT USED FOR UNKNOWN INDICATION
     Dates: start: 20161010
  15. CYANOCOBALAMIN (BETOLVEX) [Concomitant]
     Indication: PRODUCT USED FOR UNKNOWN INDICATION
     Dates: start: 20161010
  16. PANTOPRAZOLE SODIUM SESQUIHYDRATE (SOMAC) [Concomitant]
     Indication: PRODUCT USED FOR UNKNOWN INDICATION
     Dosage: ONCE A DAY AS NEEDED
     Dates: start: 20161010

REACTIONS (14)
  - Insomnia [Recovered/Resolved]
  - Folate deficiency [Not Recovered/Not Resolved]
  - Device alarm issue [Unknown]
  - Petit mal epilepsy [Recovered/Resolved]
  - Stoma site discharge [Unknown]
  - Device dislocation [Not Recovered/Not Resolved]
  - Stoma site discharge [Recovering/Resolving]
  - Stoma site erythema [Recovering/Resolving]
  - Vitamin B12 deficiency [Not Recovered/Not Resolved]
  - Pollakiuria [Not Recovered/Not Resolved]
  - Blood pressure fluctuation [Unknown]
  - Anaemia [Not Recovered/Not Resolved]
  - Hypertension [Unknown]
  - Insomnia [Not Recovered/Not Resolved]

NARRATIVE: CASE EVENT DATE: 201608
